FAERS Safety Report 5676515-5 (Version None)
Quarter: 2008Q2

REPORT INFORMATION
  Report Type: 
  Country: None (occurrence: None)
  Receive Date: 20080311
  Receipt Date: 20080103
  Transmission Date: 20081010
  Serious: No
  Sender: FDA-Public Use
  Company Number: 002#2#2007-00382

PATIENT
  Age: 81 Year
  Sex: Female
  Weight: 51.7101 kg

DRUGS (20)
  1. NEUPRO [Suspect]
     Dosage: 2MG/24H,1 IN 1 D,TRANSDERMAL
     Route: 062
     Dates: start: 20071101, end: 20080101
  2. GLUCOSAMINE [Concomitant]
  3. LODINE [Concomitant]
  4. STAVELO [Concomitant]
  5. ULTRAM [Concomitant]
  6. ASCORBIC ACID [Concomitant]
  7. STOOL SOFTENER [Concomitant]
  8. ASPIRIN [Concomitant]
  9. BETACAROTINE [Concomitant]
  10. CALCIUM [Concomitant]
  11. COD LIVER OIL [Concomitant]
  12. FISH OIL [Concomitant]
  13. MULTI-VITAMINS [Concomitant]
  14. FLAX SEED OIL [Concomitant]
  15. Q10 [Concomitant]
  16. ARICEPT [Concomitant]
  17. SELENIUM [Concomitant]
  18. ZOCOR [Concomitant]
  19. XANAX [Concomitant]
  20. MIRAPEX [Concomitant]

REACTIONS (6)
  - APPLICATION SITE PRURITUS [None]
  - BALANCE DISORDER [None]
  - DEPRESSION [None]
  - DIZZINESS [None]
  - HALLUCINATION [None]
  - TREMOR [None]
